FAERS Safety Report 9300398 (Version 1)
Quarter: 2013Q1

REPORT INFORMATION
  Report Type: Spontaneous
  Country: US (occurrence: None)
  Receive Date: 20130107
  Receipt Date: 20130107
  Transmission Date: 20140127
  Serious: Yes (Other)
  Sender: FDA-Public Use
  Company Number: PHEH2012US017401

PATIENT
  Age: 47 Year
  Sex: Female

DRUGS (1)
  1. GILENYA ( FTY) CAPSULE, 0.5 MG [Suspect]
     Indication: MULTIPLE SCLEROSIS
     Route: 048
     Dates: start: 201103

REACTIONS (9)
  - Bronchitis [None]
  - Muscle strain [None]
  - Multiple sclerosis relapse [None]
  - Memory impairment [None]
  - Hypoaesthesia [None]
  - Pain in extremity [None]
  - Pain [None]
  - Asthenia [None]
  - Back pain [None]
